FAERS Safety Report 8581668-5 (Version None)
Quarter: 2012Q3

REPORT INFORMATION
  Report Type: 
  Country: None (occurrence: None)
  Receive Date: 20120801
  Receipt Date: 20120801
  Transmission Date: 20120928
  Serious: Yes (Other)
  Sender: FDA-Public Use
  Company Number: None

PATIENT
  Age: 56 Year
  Sex: Female
  Weight: 77.1115 kg

DRUGS (1)
  1. OXCARBAZEPINE [Suspect]
     Indication: BIPOLAR I DISORDER
     Dates: start: 20110215, end: 20120730

REACTIONS (1)
  - FUNGAL INFECTION [None]
